FAERS Safety Report 13515648 (Version 2)
Quarter: 2017Q2

REPORT INFORMATION
  Report Type: Spontaneous
  Country: JP (occurrence: JP)
  Receive Date: 20170504
  Receipt Date: 20170522
  Transmission Date: 20170830
  Serious: Yes (Disabling, Other)
  Sender: FDA-Public Use
  Company Number: JP-GILEAD-2016-0240314

PATIENT
  Age: 66 Year
  Sex: Male

DRUGS (9)
  1. VASOLAN                            /00014302/ [Concomitant]
     Active Substance: VERAPAMIL HYDROCHLORIDE
     Dosage: 1 DF, TID
  2. WARFARIN [Concomitant]
     Active Substance: WARFARIN
     Dosage: 3 MG, QD
  3. THEOPHYLLINE [Concomitant]
     Active Substance: THEOPHYLLINE ANHYDROUS
     Dosage: 1 DF, QD
  4. ZEFIX [Suspect]
     Active Substance: LAMIVUDINE
     Indication: CHRONIC HEPATITIS B
     Dosage: 100 MG, QD
     Route: 048
     Dates: start: 20001226, end: 20150827
  5. HEPSERA [Suspect]
     Active Substance: ADEFOVIR DIPIVOXIL
     Dosage: 1 DF, QOD
     Route: 048
     Dates: start: 20140922, end: 20150828
  6. SYMBICORT [Concomitant]
     Active Substance: BUDESONIDE\FORMOTEROL FUMARATE DIHYDRATE
     Dosage: 2 DF, BID
  7. SAWATENE [Concomitant]
     Active Substance: CARBOCYSTEINE
     Dosage: 1 DF, TID
  8. HEPSERA [Suspect]
     Active Substance: ADEFOVIR DIPIVOXIL
     Indication: CHRONIC HEPATITIS B
     Dosage: 10 MG, 1D
     Route: 048
     Dates: start: 20130215
  9. VASOLAN                            /00014302/ [Concomitant]
     Active Substance: VERAPAMIL HYDROCHLORIDE
     Dosage: 1 DF, TID

REACTIONS (6)
  - Drug resistance [Unknown]
  - Renal impairment [Not Recovered/Not Resolved]
  - Liver disorder [Unknown]
  - Renal tubular disorder [Unknown]
  - Proteinuria [Not Recovered/Not Resolved]
  - Hepatitis B DNA increased [Unknown]

NARRATIVE: CASE EVENT DATE: 20130118
